FAERS Safety Report 4748045-6 (Version None)
Quarter: 2005Q3

REPORT INFORMATION
  Report Type: 
  Country: None (occurrence: None)
  Receive Date: 20050818
  Receipt Date: 20050411
  Transmission Date: 20060218
  Serious: Yes (Disabling)
  Sender: FDA-Public Use
  Company Number: PHNR2005AU00742

PATIENT
  Age: 56 Year
  Sex: Male

DRUGS (5)
  1. GLEEVEC [Suspect]
     Indication: CHRONIC MYELOID LEUKAEMIA
     Dosage: UNK, UNK
     Dates: start: 20040204, end: 20050808
  2. XANAX [Concomitant]
  3. CIPRAMIL [Concomitant]
  4. TEVETEN [Concomitant]
  5. UREMIDE [Concomitant]

REACTIONS (2)
  - ARTHRALGIA [None]
  - ASEPTIC NECROSIS BONE [None]
